FAERS Safety Report 8707628 (Version 2)
Quarter: 2013Q4

REPORT INFORMATION
  Report Type: Spontaneous
  Country: US (occurrence: US)
  Receive Date: 20120805
  Receipt Date: 20131101
  Transmission Date: 20140711
  Serious: No
  Sender: FDA-Public Use
  Company Number: US-009507513-1207USA010551

PATIENT
  Sex: Male

DRUGS (2)
  1. ZOCOR [Suspect]
     Dosage: 20 MG, QD
     Route: 048
  2. AMLODIPINE BESYLATE [Suspect]
     Dosage: 10 MG, QD

REACTIONS (5)
  - Drug interaction [Unknown]
  - Muscle tightness [Unknown]
  - Myalgia [Unknown]
  - Arthropathy [Unknown]
  - Pain in extremity [Unknown]
